FAERS Safety Report 7677969-5 (Version None)
Quarter: 2011Q3

REPORT INFORMATION
  Report Type: 
  Country: None (occurrence: None)
  Receive Date: 20110811
  Receipt Date: 20110729
  Transmission Date: 20111222
  Serious: Yes (Congenital Anomaly)
  Sender: FDA-Public Use
  Company Number: US-GLAXOSMITHKLINE-A0874694A

PATIENT
  Sex: Female
  Weight: 3.4 kg

DRUGS (4)
  1. PAXIL CR [Suspect]
     Indication: DEPRESSION
     Route: 064
     Dates: start: 20040209
  2. AMBIEN [Concomitant]
     Route: 064
     Dates: start: 20040209
  3. XANAX [Concomitant]
     Route: 064
     Dates: start: 20040211
  4. VALTREX [Concomitant]
     Route: 064
     Dates: start: 20040315

REACTIONS (2)
  - CARDIAC MURMUR [None]
  - MATERNAL EXPOSURE DURING PREGNANCY [None]
